FAERS Safety Report 5100138-X (Version None)
Quarter: 2006Q3

REPORT INFORMATION
  Report Type: 
  Country: None (occurrence: None)
  Receive Date: 20060731
  Receipt Date: 20060411
  Transmission Date: 20061208
  Serious: Yes (Other)
  Sender: FDA-Public Use
  Company Number: US-JNJFOC-20041007289

PATIENT
  Age: 24 Year
  Sex: Male
  Weight: 68.0396 kg

DRUGS (15)
  1. RISPERDAL [Suspect]
     Indication: DRUG USE FOR UNKNOWN INDICATION
     Dates: start: 20010501, end: 20010820
  2. RISPERDAL [Suspect]
     Indication: DRUG USE FOR UNKNOWN INDICATION
     Dates: start: 20010821, end: 20010824
  3. RISPERDAL [Suspect]
     Indication: DRUG USE FOR UNKNOWN INDICATION
     Dates: start: 19990101
  4. LITHOBID [Concomitant]
  5. LORAZEPAM [Concomitant]
  6. RITALIN-SR [Concomitant]
  7. RITALIN-SR [Concomitant]
  8. CELEBREX [Concomitant]
  9. DEPAKOTE [Concomitant]
  10. LAMICTAL [Concomitant]
  11. LIPITOR [Concomitant]
  12. ACCUTANE [Concomitant]
  13. TRILEPTAL [Concomitant]
  14. ADVIL [Concomitant]
  15. LORAZEPAM [Concomitant]

REACTIONS (9)
  - ASTHENIA [None]
  - BLOOD CHOLESTEROL INCREASED [None]
  - BRONCHITIS ACUTE [None]
  - ERECTILE DYSFUNCTION [None]
  - HAEMORRHOIDS [None]
  - RECTAL HAEMORRHAGE [None]
  - STEVENS-JOHNSON SYNDROME [None]
  - TARDIVE DYSKINESIA [None]
  - WEIGHT DECREASED [None]
